FAERS Safety Report 15005463 (Version 2)
Quarter: 2019Q2

REPORT INFORMATION
  Report Type: Spontaneous
  Country: NL (occurrence: NL)
  Receive Date: 20180613
  Receipt Date: 20190617
  Transmission Date: 20190711
  Serious: Yes (Hospitalization, Other)
  Sender: FDA-Public Use
  Company Number: NL-ACTELION-A-CH2018-173646

PATIENT
  Sex: Female

DRUGS (1)
  1. OPSUMIT [Suspect]
     Active Substance: MACITENTAN
     Indication: CONNECTIVE TISSUE DISORDER
     Dosage: 10 MG, OD
     Route: 048
     Dates: start: 20170607

REACTIONS (5)
  - Dyspnoea [Unknown]
  - Panic attack [Unknown]
  - Lower limb fracture [Unknown]
  - Chest pain [Unknown]
  - Fall [Unknown]
